FAERS Safety Report 15439693 (Version 1)
Quarter: 2018Q3

REPORT INFORMATION
  Report Type: Spontaneous
  Country: PT (occurrence: PT)
  Receive Date: 20180928
  Receipt Date: 20180928
  Transmission Date: 20181010
  Serious: Yes (Life-Threatening, Other)
  Sender: FDA-Public Use
  Company Number: PT-GLAXOSMITHKLINE-PT2018175784

PATIENT
  Age: 31 Year
  Sex: Female

DRUGS (5)
  1. ROPIVACAINE [Concomitant]
     Active Substance: ROPIVACAINE
     Indication: ANAESTHESIA
     Dosage: UNK
     Route: 008
     Dates: start: 201604
  2. AMPICILLIN [Concomitant]
     Active Substance: AMPICILLIN
     Indication: PRODUCT USED FOR UNKNOWN INDICATION
     Dosage: UNK
     Route: 042
     Dates: start: 2016
  3. RANITIDINE. [Suspect]
     Active Substance: RANITIDINE
     Indication: PRODUCT USED FOR UNKNOWN INDICATION
     Dosage: PERFUSION
     Route: 042
     Dates: start: 2016
  4. SUFENTANIL [Concomitant]
     Active Substance: SUFENTANIL
     Indication: ANAESTHESIA
     Dosage: UNK
     Route: 008
     Dates: start: 20160401
  5. METOCLOPRAMIDE. [Concomitant]
     Active Substance: METOCLOPRAMIDE
     Indication: PRODUCT USED FOR UNKNOWN INDICATION
     Dosage: UNK
     Route: 042
     Dates: start: 2016

REACTIONS (2)
  - Maternal exposure during pregnancy [Unknown]
  - Anaphylactic reaction [Unknown]

NARRATIVE: CASE EVENT DATE: 2016
